FAERS Safety Report 7775814-0 (Version None)
Quarter: 2011Q3

REPORT INFORMATION
  Report Type: 
  Country: None (occurrence: None)
  Receive Date: 20110923
  Receipt Date: 20110914
  Transmission Date: 20111222
  Serious: Yes (Other)
  Sender: FDA-Public Use
  Company Number: PHEH2010US03864

PATIENT
  Sex: Female
  Weight: 62.585 kg

DRUGS (12)
  1. FEMARA [Concomitant]
     Dosage: 2.5 MG, UNK
  2. ASPIRIN [Concomitant]
  3. PERIDEX [Concomitant]
  4. ANTICOAGULANTS [Concomitant]
  5. PLAVIX [Concomitant]
     Dosage: 75 MG, UNK
  6. SIMVASTATIN [Concomitant]
     Dosage: 20 MG, UNK
  7. LOPRESSOR [Concomitant]
     Dosage: 50 MG, UNK
  8. CLINDAMYCIN [Concomitant]
  9. ZOMETA [Suspect]
  10. METFORMIN HCL [Concomitant]
     Dosage: 500 MG, UNK
  11. AMARYL [Concomitant]
     Dosage: 2 MG, UNK
  12. CENTRUM SILVER [Concomitant]

REACTIONS (20)
  - PAIN [None]
  - DEFORMITY [None]
  - INJURY [None]
  - EMOTIONAL DISTRESS [None]
  - ORAL PAIN [None]
  - GINGIVAL PAIN [None]
  - HYPERTENSION [None]
  - BLOOD CHOLESTEROL INCREASED [None]
  - ULCER [None]
  - CORONARY ARTERY DISEASE [None]
  - OSTEONECROSIS OF JAW [None]
  - INFECTION [None]
  - PHYSICAL DISABILITY [None]
  - BONE NEOPLASM MALIGNANT [None]
  - DYSLIPIDAEMIA [None]
  - STRESS [None]
  - CHEST PAIN [None]
  - LIVER DISORDER [None]
  - BREAST CANCER [None]
  - SWELLING FACE [None]
